FAERS Safety Report 7562716-8 (Version None)
Quarter: 2011Q2

REPORT INFORMATION
  Report Type: 
  Country: None (occurrence: None)
  Receive Date: 20110622
  Receipt Date: 20110615
  Transmission Date: 20111010
  Serious: Yes (Other)
  Sender: FDA-Public Use
  Company Number: DE-PFIZER INC-2011110111

PATIENT
  Age: 38 Year
  Sex: Male
  Weight: 90 kg

DRUGS (4)
  1. RAMIPRIL [Concomitant]
     Dosage: 5 MG, 2X/DAY
  2. SIMVASTATIN [Concomitant]
     Dosage: 20 MG, 1X/DAY
  3. ROCALTROL [Concomitant]
     Dosage: UNK
     Dates: start: 20110501
  4. ECALTA [Suspect]
     Indication: CANDIDIASIS
     Dosage: 200 MG, UNK
     Route: 042
     Dates: start: 20110426

REACTIONS (2)
  - VISION BLURRED [None]
  - MYOCLONUS [None]
